FAERS Safety Report 9228347 (Version 1)
Quarter: 2013Q2

REPORT INFORMATION
  Report Type: Spontaneous
  Country: FR (occurrence: FR)
  Receive Date: 20130412
  Receipt Date: 20130412
  Transmission Date: 20140414
  Serious: Yes (Disabling)
  Sender: FDA-Public Use
  Company Number: FR-JNJFOC-20130404845

PATIENT
  Age: 88 Year
  Sex: Male

DRUGS (5)
  1. XARELTO [Suspect]
     Indication: CEREBROVASCULAR ACCIDENT PROPHYLAXIS
     Route: 048
     Dates: start: 20130123, end: 20130125
  2. XARELTO [Suspect]
     Indication: ATRIAL FIBRILLATION
     Route: 048
     Dates: start: 20130123, end: 20130125
  3. PRADAXA [Concomitant]
     Route: 065
     Dates: start: 20120803, end: 20121110
  4. PRADAXA [Concomitant]
     Route: 065
     Dates: start: 20121111, end: 20130121
  5. AMIODARONE [Concomitant]
     Route: 048

REACTIONS (3)
  - Cognitive disorder [Unknown]
  - Hallucination, visual [Unknown]
  - Hallucination, auditory [Unknown]
